FAERS Safety Report 7778821-7 (Version None)
Quarter: 2011Q3

REPORT INFORMATION
  Report Type: 
  Country: None (occurrence: None)
  Receive Date: 20110926
  Receipt Date: 20110920
  Transmission Date: 20111222
  Serious: No
  Sender: FDA-Public Use
  Company Number: US-BAYER-2011-088983

PATIENT
  Sex: Male

DRUGS (14)
  1. XANAX [Concomitant]
     Dosage: 0.25 MG, UNK
  2. HYDRALAZINE HCL [Concomitant]
     Dosage: 25 MG, TID
  3. CARVEDILOL [Concomitant]
     Dosage: 6.25 MG, UNK
  4. METOPROLOL SUCCINATE [Concomitant]
     Dosage: UNK
     Dates: start: 20100321
  5. VICODIN [Concomitant]
  6. AMIODARONE HCL [Concomitant]
     Dosage: 200 MG, UNK
  7. AMBIEN [Concomitant]
     Dosage: 5 MG, UNK
  8. ALLOPURINOL [Concomitant]
     Dosage: 300 MG, UNK
  9. CLONIDINE [Concomitant]
     Dosage: 0.1 MG, UNK
  10. NEXAVAR [Suspect]
     Dosage: UNK
     Dates: start: 20100122, end: 20100901
  11. ACETAMINOPHEN AND HYDROCODONE BITARTRATE [Concomitant]
  12. LIPITOR [Concomitant]
     Dosage: 20 MG, UNK
  13. DIGOXIN [Concomitant]
     Dosage: 0.125 MG, UNK
  14. ASPIRIN [Concomitant]
     Dosage: 325 MG, UNK

REACTIONS (4)
  - PAIN IN EXTREMITY [None]
  - DIARRHOEA [None]
  - NAUSEA [None]
  - VOMITING [None]
